FAERS Safety Report 21662726 (Version 2)
Quarter: 2022Q4

REPORT INFORMATION
  Report Type: Spontaneous
  Country: BR (occurrence: BR)
  Receive Date: 20221130
  Receipt Date: 20221201
  Transmission Date: 20230113
  Serious: Yes (Death)
  Sender: FDA-Public Use
  Company Number: BR-ABBVIE-4217377

PATIENT
  Sex: Male

DRUGS (3)
  1. VENCLEXTA [Suspect]
     Active Substance: VENETOCLAX
     Indication: Graft versus host disease
     Dosage: FORM STRENGTH 100 MILLIGRAM
     Route: 048
     Dates: start: 202210
  2. LETERMOVIR [Concomitant]
     Active Substance: LETERMOVIR
     Indication: Product used for unknown indication
     Dosage: FORM STRENGTH 240 MILLIGRAM
  3. LETERMOVIR [Concomitant]
     Active Substance: LETERMOVIR
     Indication: Product used for unknown indication
     Dosage: FORM STRENGTH 480 MILLIGRAM

REACTIONS (1)
  - Leukaemia [Fatal]
